FAERS Safety Report 4467749-6 (Version None)
Quarter: 2004Q4

REPORT INFORMATION
  Report Type: 
  Country: None (occurrence: None)
  Receive Date: 20041001
  Receipt Date: 20040915
  Transmission Date: 20050328
  Serious: Yes (Hospitalization, Disabling)
  Sender: FDA-Public Use
  Company Number: DSA_24980_2004

PATIENT
  Age: 87 Year
  Sex: Female

DRUGS (4)
  1. TEVETEN [Suspect]
     Indication: HYPERTENSION
     Dosage: 600 MG Q DAY PO
     Route: 048
     Dates: start: 20040401, end: 20040801
  2. TEVETEN [Suspect]
     Indication: HYPERTENSION
     Dosage: 400 MG Q DAY PO
     Route: 048
     Dates: start: 20040801
  3. SYNTHROID [Concomitant]
  4. ASPIRIN [Concomitant]

REACTIONS (1)
  - CEREBROVASCULAR ACCIDENT [None]
